FAERS Safety Report 9940643 (Version 1)
Quarter: 2014Q1

REPORT INFORMATION
  Report Type: Spontaneous
  Country: FR (occurrence: FR)
  Receive Date: 20140303
  Receipt Date: 20140303
  Transmission Date: 20141002
  Serious: Yes (Other)
  Sender: FDA-Public Use
  Company Number: FR-EISAI INC-E3810-06924-SPO-FR

PATIENT
  Age: 67 Year
  Sex: Female

DRUGS (1)
  1. PARIET (RABEPRAZOLE) [Suspect]
     Indication: GASTRIC ULCER
     Dosage: UNKNOWN
     Route: 048
     Dates: start: 20140109

REACTIONS (1)
  - Pyelonephritis [Not Recovered/Not Resolved]
